FAERS Safety Report 11354566 (Version 1)
Quarter: 2015Q3

REPORT INFORMATION
  Report Type: Spontaneous
  Country: US (occurrence: US)
  Receive Date: 20150807
  Receipt Date: 20150807
  Transmission Date: 20151125
  Serious: No
  Sender: FDA-Public Use
  Company Number: US-JNJFOC-20150203850

PATIENT
  Age: 58 Year
  Sex: Female
  Weight: 68.04 kg

DRUGS (4)
  1. SYNTHROID [Concomitant]
     Active Substance: LEVOTHYROXINE SODIUM
     Indication: THYROID DISORDER
     Dosage: 25 YEARS, DAILY
     Route: 065
  2. UNSPECIFIED ALLERGY MEDICATIONS [Concomitant]
     Indication: MULTIPLE ALLERGIES
     Route: 065
  3. MENS ROGAINE EXTRA STRENGTH [Suspect]
     Active Substance: MINOXIDIL
     Route: 061
  4. MENS ROGAINE EXTRA STRENGTH [Suspect]
     Active Substance: MINOXIDIL
     Indication: ALOPECIA
     Dosage: USED A FEW DROPS,EVERY OTHER DAY
     Route: 061

REACTIONS (3)
  - Inappropriate schedule of drug administration [Unknown]
  - Hair disorder [Unknown]
  - Wrong patient received medication [Unknown]
